FAERS Safety Report 5496718-2 (Version None)
Quarter: 2007Q4

REPORT INFORMATION
  Report Type: 
  Country: None (occurrence: None)
  Receive Date: 20071023
  Receipt Date: 20071023
  Transmission Date: 20080405
  Serious: Yes (Hospitalization)
  Sender: FDA-Public Use
  Company Number: None

PATIENT
  Sex: Female
  Weight: 71.3 kg

DRUGS (4)
  1. CARBOPLATIN [Suspect]
     Indication: OVARIAN CANCER
     Dosage: AUC 5   Q 3 WEEKS   IV  (DURATION: UNTIL DISEASE PROGRESSION)
     Route: 042
  2. PACLITAXEL [Suspect]
     Indication: OVARIAN CANCER
     Dosage: 150 MG/M2  Q 3 WEEKS  IV  (DURATION: UNTIL DISEASE PROGRESSION)
     Route: 042
  3. DASATINIB [Concomitant]
  4. ZOFRAN [Concomitant]

REACTIONS (1)
  - ABDOMINAL PAIN UPPER [None]
